FAERS Safety Report 10923615 (Version 4)
Quarter: 2015Q2

REPORT INFORMATION
  Report Type: Spontaneous
  Country: US (occurrence: US)
  Receive Date: 20150318
  Receipt Date: 20150526
  Transmission Date: 20150821
  Serious: Yes (Hospitalization)
  Sender: FDA-Public Use
  Company Number: US-JNJFOC-20140613471

PATIENT
  Age: 84 Year
  Sex: Female

DRUGS (16)
  1. QUETIAPINE [Suspect]
     Active Substance: QUETIAPINE
     Indication: AGITATION
     Route: 065
  2. LORAZEPAM. [Suspect]
     Active Substance: LORAZEPAM
     Indication: AGGRESSION
     Route: 065
  3. RISPERIDONE. [Suspect]
     Active Substance: RISPERIDONE
     Indication: DEMENTIA
     Route: 065
  4. HALOPERIDOL. [Suspect]
     Active Substance: HALOPERIDOL
     Indication: DELUSION
     Route: 065
  5. HALOPERIDOL. [Suspect]
     Active Substance: HALOPERIDOL
     Indication: DEMENTIA
     Route: 065
  6. QUETIAPINE [Suspect]
     Active Substance: QUETIAPINE
     Indication: DEMENTIA
     Route: 065
  7. LORAZEPAM. [Suspect]
     Active Substance: LORAZEPAM
     Indication: DELUSION
     Route: 065
  8. HALOPERIDOL. [Suspect]
     Active Substance: HALOPERIDOL
     Indication: AGGRESSION
     Route: 065
  9. RISPERIDONE. [Suspect]
     Active Substance: RISPERIDONE
     Indication: DELUSION
     Route: 065
  10. RISPERIDONE. [Suspect]
     Active Substance: RISPERIDONE
     Indication: AGGRESSION
     Route: 065
  11. QUETIAPINE [Suspect]
     Active Substance: QUETIAPINE
     Indication: DELUSION
     Route: 065
  12. LORAZEPAM. [Suspect]
     Active Substance: LORAZEPAM
     Indication: DEMENTIA
     Route: 065
  13. HALOPERIDOL. [Suspect]
     Active Substance: HALOPERIDOL
     Indication: AGITATION
     Route: 065
  14. LORAZEPAM. [Suspect]
     Active Substance: LORAZEPAM
     Indication: AGITATION
     Route: 065
  15. RISPERIDONE. [Suspect]
     Active Substance: RISPERIDONE
     Indication: AGITATION
     Route: 065
  16. QUETIAPINE [Suspect]
     Active Substance: QUETIAPINE
     Indication: AGGRESSION
     Route: 065

REACTIONS (1)
  - Treatment failure [Unknown]
